FAERS Safety Report 9735637 (Version 3)
Quarter: 2013Q4

REPORT INFORMATION
  Report Type: Spontaneous
  Country: DE (occurrence: DE)
  Receive Date: 20131206
  Receipt Date: 20131216
  Transmission Date: 20140711
  Serious: Yes (Other)
  Sender: FDA-Public Use
  Company Number: PHHY2013DE140953

PATIENT
  Sex: Female

DRUGS (5)
  1. CO-DIOVAN [Suspect]
     Dosage: 1 DF (VALS 80 MG / HYDR 12.5 MG), QD
  2. CO-DIOVAN [Suspect]
     Dosage: 0.5 DF, QD  (80MG VALS, 12.5 MG HCT)
  3. CO-DIOVAN [Suspect]
     Dosage: 1 DF, QD  (80MG VALS, 12.5 MG HCT)
  4. METFORMIN [Suspect]
     Dosage: UNK UKN, UNK
  5. CALCIFEROL VIT D [Concomitant]
     Indication: PROPHYLAXIS
     Dosage: UNK UKN, UNK

REACTIONS (10)
  - Diabetes mellitus [Unknown]
  - Cataract [Unknown]
  - Burnout syndrome [Unknown]
  - Bacterial infection [Unknown]
  - Blood pressure increased [Recovering/Resolving]
  - Blood pressure decreased [Unknown]
  - Syncope [Unknown]
  - Gout [Unknown]
  - Weight decreased [Unknown]
  - Wrong technique in drug usage process [Unknown]
